FAERS Safety Report 7772809-8 (Version None)
Quarter: 2011Q3

REPORT INFORMATION
  Report Type: 
  Country: None (occurrence: None)
  Receive Date: 20110922
  Receipt Date: 20110110
  Transmission Date: 20111222
  Serious: No
  Sender: FDA-Public Use
  Company Number: US-ASTRAZENECA-2007UW07506

PATIENT
  Age: 322 Month
  Sex: Female
  Weight: 102.5 kg

DRUGS (9)
  1. ZYPREXA [Concomitant]
     Dates: start: 20030101, end: 20050208
  2. ABILIFY [Concomitant]
     Dates: start: 20050208
  3. SEROQUEL [Suspect]
     Indication: SLEEP DISORDER
     Route: 048
     Dates: start: 20021021, end: 20021109
  4. SEROQUEL [Suspect]
     Indication: MAJOR DEPRESSION
     Route: 048
     Dates: start: 20021021, end: 20021109
  5. REMERON [Concomitant]
     Dates: start: 20021105
  6. MOBAN [Concomitant]
     Dates: start: 19960101, end: 20030101
  7. XENICAL [Concomitant]
     Dates: start: 20020523, end: 20030101
  8. PROPOXYPHENE NAPSYLATE AND ACETAMINOPHEN [Concomitant]
     Dosage: 100-650 MG
     Dates: start: 20030916
  9. LEXAPRO [Concomitant]
     Dates: start: 20030101

REACTIONS (6)
  - INSULIN RESISTANCE [None]
  - HYPERLIPIDAEMIA [None]
  - BLOOD CHOLESTEROL INCREASED [None]
  - BLOOD TRIGLYCERIDES INCREASED [None]
  - TYPE 2 DIABETES MELLITUS [None]
  - CARPAL TUNNEL SYNDROME [None]
